FAERS Safety Report 13087598 (Version 1)
Quarter: 2017Q1

REPORT INFORMATION
  Report Type: Other
  Country: ES (occurrence: ES)
  Receive Date: 20170105
  Receipt Date: 20170105
  Transmission Date: 20170428
  Serious: Yes (Life-Threatening, Hospitalization)
  Sender: FDA-Public Use
  Company Number: ES-APOTEX-2016AP016158

PATIENT
  Age: 90 Year
  Sex: Female

DRUGS (3)
  1. HIDROCLOROTIAZIDA APOTEX COMPRIMIDOS [Suspect]
     Active Substance: HYDROCHLOROTHIAZIDE
     Indication: HYPERTENSION
     Dosage: 25 MG, QD
     Route: 048
     Dates: start: 20160426, end: 20160624
  2. SPIRONOLACTONE. [Concomitant]
     Active Substance: SPIRONOLACTONE
     Indication: PRODUCT USED FOR UNKNOWN INDICATION
     Dosage: 100 MG, UNK
     Route: 065
  3. FUROSEMIDA APOTEX COMPRIMIDOS EFG [Suspect]
     Active Substance: FUROSEMIDE
     Indication: HYPERTENSION
     Dosage: 80 MG, QD
     Route: 048
     Dates: start: 20160426, end: 20160624

REACTIONS (8)
  - Hypokalaemia [None]
  - Urinary tract infection [None]
  - Dehydration [None]
  - Hyponatraemia [Recovered/Resolved]
  - Leukocytosis [None]
  - Rhabdomyolysis [Recovered/Resolved]
  - Hypophagia [None]
  - Hypokalaemia [Recovered/Resolved]

NARRATIVE: CASE EVENT DATE: 201606
